FAERS Safety Report 4678614-3 (Version None)
Quarter: 2005Q2

REPORT INFORMATION
  Report Type: 
  Country: None (occurrence: None)
  Receive Date: 20050527
  Receipt Date: 20050510
  Transmission Date: 20051028
  Serious: No
  Sender: FDA-Public Use
  Company Number: MAG-2005-0000353

PATIENT
  Age: 62 Year
  Sex: Male

DRUGS (7)
  1. THEOPHYLLINE [Suspect]
     Indication: ASTHMA
     Dosage: 400 MG, DAILY, ORAL
     Route: 048
     Dates: start: 20031119, end: 20050425
  2. SULPIRIDE (SULPIRIDE) [Concomitant]
  3. PRANLUKAST (PRANLUKAST) [Concomitant]
  4. ALLOPURINOL [Concomitant]
  5. FLUVOXAMINE (FLUOXAMINE) [Concomitant]
  6. NAFTOPIDIL [Concomitant]
  7. BIFIDOBACTERIUM [Concomitant]

REACTIONS (8)
  - ALCOHOL USE [None]
  - ANOREXIA [None]
  - BLOOD AMYLASE INCREASED [None]
  - DEPRESSED LEVEL OF CONSCIOUSNESS [None]
  - DRUG LEVEL INCREASED [None]
  - EPILEPSY [None]
  - GAMMA-GLUTAMYLTRANSFERASE INCREASED [None]
  - MALAISE [None]
